FAERS Safety Report 12655511 (Version 1)
Quarter: 2016Q3

REPORT INFORMATION
  Report Type: Spontaneous
  Country: US (occurrence: US)
  Receive Date: 20160816
  Receipt Date: 20160816
  Transmission Date: 20161109
  Serious: No
  Sender: FDA-Public Use
  Company Number: US-PERRIGO-16US000275

PATIENT
  Age: 46 Year
  Sex: Female
  Weight: 113.38 kg

DRUGS (2)
  1. GENTAMICIN SULFATE. [Suspect]
     Active Substance: GENTAMICIN SULFATE
     Dosage: HALF INCH, QID
     Route: 047
     Dates: start: 201512
  2. GENTAMICIN SULFATE. [Suspect]
     Active Substance: GENTAMICIN SULFATE
     Indication: CONJUNCTIVITIS
     Dosage: HALF INCH, BID
     Route: 047
     Dates: start: 201512, end: 201512

REACTIONS (3)
  - Feeling abnormal [Recovered/Resolved]
  - Hallucination [Recovered/Resolved]
  - Inappropriate schedule of drug administration [Recovered/Resolved]

NARRATIVE: CASE EVENT DATE: 201512
